FAERS Safety Report 14696645 (Version 1)
Quarter: 2018Q1

REPORT INFORMATION
  Report Type: Spontaneous
  Country: US (occurrence: US)
  Receive Date: 20180330
  Receipt Date: 20180330
  Transmission Date: 20180509
  Serious: No
  Sender: FDA-Public Use
  Company Number: US-SA-2017SA062728

PATIENT
  Sex: Female

DRUGS (3)
  1. MAGNESIUM [Concomitant]
     Active Substance: MAGNESIUM
     Route: 065
  2. CHOLESTYRAMINE. [Concomitant]
     Active Substance: CHOLESTYRAMINE
     Route: 065
  3. ALLEGRA ALLERGY [Suspect]
     Active Substance: FEXOFENADINE HYDROCHLORIDE
     Route: 048

REACTIONS (5)
  - Visual impairment [Unknown]
  - Dysphonia [Unknown]
  - Upper respiratory tract congestion [Unknown]
  - Urticaria [Unknown]
  - Sinus disorder [Unknown]
